FAERS Safety Report 16750316 (Version 2)
Quarter: 2019Q3

REPORT INFORMATION
  Report Type: Spontaneous
  Country: DE (occurrence: DE)
  Receive Date: 20190828
  Receipt Date: 20190902
  Transmission Date: 20191005
  Serious: Yes (Other)
  Sender: FDA-Public Use
  Company Number: DE-ASTRAZENECA-2019SF21978

PATIENT

DRUGS (1)
  1. QUETIAPIN [Suspect]
     Active Substance: QUETIAPINE
     Route: 048

REACTIONS (1)
  - Thyroid mass [Unknown]
